FAERS Safety Report 17012334 (Version 1)
Quarter: 2019Q4

REPORT INFORMATION
  Report Type: Spontaneous
  Country: US (occurrence: US)
  Receive Date: 20191108
  Receipt Date: 20191108
  Transmission Date: 20200122
  Serious: No
  Sender: FDA-Public Use
  Company Number: US-TEVA-2019-US-1132911

PATIENT
  Sex: Female

DRUGS (2)
  1. DULOXETINE DELAYED RELEASE CAPSULES ACTAVIS [Suspect]
     Active Substance: DULOXETINE
     Indication: FIBROMYALGIA
     Dosage: DELAYED RELEASE CAPSULES
     Route: 065
     Dates: start: 20191001
  2. DULOXETINE DELAYED RELEASE CAPSULES ACTAVIS [Suspect]
     Active Substance: DULOXETINE
     Indication: PAIN
     Route: 065
     Dates: start: 20191001

REACTIONS (9)
  - Flushing [Unknown]
  - Discomfort [Unknown]
  - Disturbance in attention [Unknown]
  - Euphoric mood [Unknown]
  - Pain [Unknown]
  - Hot flush [Unknown]
  - Feeling abnormal [Unknown]
  - Product substitution issue [Unknown]
  - Drug ineffective [Unknown]

NARRATIVE: CASE EVENT DATE: 20191001
